FAERS Safety Report 9988568 (Version 1)
Quarter: 2014Q1

REPORT INFORMATION
  Report Type: Report from Study
  Country: US (occurrence: US)
  Receive Date: 20140310
  Receipt Date: 20140310
  Transmission Date: 20141002
  Serious: Yes (Hospitalization)
  Sender: FDA-Public Use
  Company Number: US-ROCHE-1356734

PATIENT
  Age: 9 Year
  Sex: Male
  Weight: 49.3 kg

DRUGS (20)
  1. CELLCEPT [Suspect]
     Indication: PRODUCT USED FOR UNKNOWN INDICATION
     Route: 048
  2. SINGULAIR [Concomitant]
     Route: 048
  3. CIPRODEX (CIPROFLOXACIN/DEXAMETHASONE) [Concomitant]
     Dosage: 4 DROPS
     Route: 065
  4. PREDNISOLON [Concomitant]
     Route: 048
  5. LISINOPRIL/HCTZ [Concomitant]
     Dosage: 10 TO 12.5 M
     Route: 048
  6. ARANESP [Concomitant]
     Route: 065
  7. LIPITOR [Concomitant]
     Route: 048
  8. SODIUM BICARBONATE [Concomitant]
     Route: 048
  9. VENTOLIN HFA [Concomitant]
     Indication: WHEEZING
     Route: 065
  10. VENTOLIN HFA [Concomitant]
     Indication: COUGH
  11. FLOVENT HFA [Concomitant]
     Route: 065
  12. ROCALTROL [Concomitant]
     Route: 065
  13. RENAGEL [Concomitant]
     Route: 048
  14. HYDROCORTISONE [Concomitant]
     Indication: ECZEMA
     Route: 061
  15. ZYRTEC [Concomitant]
     Route: 048
  16. PREVACID [Concomitant]
     Route: 048
  17. PULMOZYME [Concomitant]
     Route: 065
  18. CALCIUM CARBONATE [Concomitant]
     Route: 065
  19. FOLIC ACID [Concomitant]
     Route: 048
  20. NORVASC [Concomitant]
     Route: 048

REACTIONS (6)
  - Respiratory distress [Recovered/Resolved]
  - Cough [Not Recovered/Not Resolved]
  - Vomiting [Recovered/Resolved]
  - Diarrhoea [Unknown]
  - Renal failure acute [Unknown]
  - Proteinuria [Unknown]
